FAERS Safety Report 7087148-0 (Version None)
Quarter: 2010Q4

REPORT INFORMATION
  Report Type: 
  Country: None (occurrence: None)
  Receive Date: 20101106
  Receipt Date: 20101029
  Transmission Date: 20110411
  Serious: No
  Sender: FDA-Public Use
  Company Number: US-WYE-H18499410

PATIENT
  Age: 55 Year
  Sex: Male

DRUGS (2)
  1. TORISEL [Suspect]
     Indication: NEOPLASM MALIGNANT
     Dosage: UNKNOWN DOSAGE AND FREQUENCY
     Route: 042
  2. BENADRYL [Concomitant]

REACTIONS (2)
  - DYSPNOEA [None]
  - FLUSHING [None]
